FAERS Safety Report 14355254 (Version 1)
Quarter: 2018Q1

REPORT INFORMATION
  Report Type: Spontaneous
  Country: FR (occurrence: FR)
  Receive Date: 20180105
  Receipt Date: 20180105
  Transmission Date: 20180509
  Serious: Yes (Other)
  Sender: FDA-Public Use
  Company Number: FR-MERCK KGAA-2039445

PATIENT
  Age: 67 Year
  Sex: Female
  Weight: 69 kg

DRUGS (1)
  1. NOVOTHYROX [Suspect]
     Active Substance: LEVOTHYROXINE SODIUM
     Indication: THYROIDECTOMY
     Route: 048
     Dates: start: 20170804, end: 20170927

REACTIONS (9)
  - Eye pain [Recovering/Resolving]
  - Product formulation issue [Recovered/Resolved]
  - Diffuse alopecia [Recovering/Resolving]
  - Myalgia [Recovering/Resolving]
  - Blood thyroid stimulating hormone increased [Recovering/Resolving]
  - Fatigue [Recovering/Resolving]
  - Weight increased [Recovering/Resolving]
  - Abdominal pain upper [Recovering/Resolving]
  - Vertigo [Recovering/Resolving]

NARRATIVE: CASE EVENT DATE: 20170804
